FAERS Safety Report 18710488 (Version 2)
Quarter: 2021Q1

REPORT INFORMATION
  Report Type: Spontaneous
  Country: US (occurrence: US)
  Receive Date: 20210107
  Receipt Date: 20210128
  Transmission Date: 20210419
  Serious: Yes (Life-Threatening, Hospitalization, Other)
  Sender: FDA-Public Use
  Company Number: US-AUROBINDO-AUR-APL-2021-000151

PATIENT
  Age: 37 Year
  Sex: Male

DRUGS (1)
  1. IBUPROFEN. [Suspect]
     Active Substance: IBUPROFEN
     Indication: TOOTHACHE
     Dosage: 1 GRAM, ONCE A DAY
     Route: 065

REACTIONS (5)
  - Azotaemia [Recovered/Resolved]
  - Acute kidney injury [Recovered/Resolved]
  - Renal tubular necrosis [Recovered/Resolved]
  - Glomerulonephritis minimal lesion [Recovered/Resolved]
  - Colitis [Recovered/Resolved]
